FAERS Safety Report 20381897 (Version 1)
Quarter: 2022Q1

REPORT INFORMATION
  Report Type: Spontaneous
  Country: HK (occurrence: HK)
  Receive Date: 20220127
  Receipt Date: 20220127
  Transmission Date: 20220423
  Serious: Yes (Other)
  Sender: FDA-Public Use
  Company Number: HK-SUN PHARMACEUTICAL INDUSTRIES LTD-2022RR-325045

PATIENT
  Age: 29 Year
  Sex: Female

DRUGS (10)
  1. GEMCITABINE [Suspect]
     Active Substance: GEMCITABINE
     Indication: Nasopharyngeal cancer metastatic
     Dosage: 3 CYCLES
     Route: 065
     Dates: start: 201412, end: 201503
  2. GEMCITABINE [Suspect]
     Active Substance: GEMCITABINE
     Dosage: 6 CYLES
     Route: 065
     Dates: start: 201511, end: 201603
  3. CARBOPLATIN [Suspect]
     Active Substance: CARBOPLATIN
     Indication: Nasopharyngeal cancer metastatic
     Dosage: 6 CYCLES
     Route: 065
     Dates: start: 201511, end: 201603
  4. DOCETAXEL [Suspect]
     Active Substance: DOCETAXEL
     Indication: Nasopharyngeal cancer metastatic
     Dosage: 3 CYCLES
     Route: 065
     Dates: start: 201504, end: 201506
  5. CAPECITABINE [Suspect]
     Active Substance: CAPECITABINE
     Indication: Nasopharyngeal cancer metastatic
     Dosage: 6 CYCLES
     Route: 065
     Dates: start: 201604, end: 201608
  6. CISPLATIN [Suspect]
     Active Substance: CISPLATIN
     Indication: Nasopharyngeal cancer metastatic
     Dosage: 3 CYCLES
     Route: 065
     Dates: start: 201412, end: 201503
  7. CISPLATIN [Suspect]
     Active Substance: CISPLATIN
     Dosage: 1 CYCLE
     Route: 065
     Dates: start: 201504
  8. CISPLATIN [Suspect]
     Active Substance: CISPLATIN
     Dosage: 3 CYCLES
     Route: 065
     Dates: start: 201504, end: 201506
  9. FLUOROURACIL [Suspect]
     Active Substance: FLUOROURACIL
     Indication: Nasopharyngeal cancer metastatic
     Dosage: UNK, 1 CYCLE
     Route: 065
     Dates: start: 201504
  10. CYCLOPHOSPHAMIDE [Suspect]
     Active Substance: CYCLOPHOSPHAMIDE
     Indication: Nasopharyngeal cancer metastatic
     Dosage: UNK
     Route: 065
     Dates: start: 201608, end: 201609

REACTIONS (2)
  - Disease progression [Unknown]
  - Drug ineffective [Unknown]
